FAERS Safety Report 6555146-9 (Version None)
Quarter: 2010Q1

REPORT INFORMATION
  Report Type: 
  Country: None (occurrence: None)
  Receive Date: 20100126
  Receipt Date: 20100126
  Transmission Date: 20100710
  Serious: Yes (Hospitalization)
  Sender: FDA-Public Use
  Company Number: None

PATIENT
  Sex: Male

DRUGS (11)
  1. SORAFENIB [Suspect]
     Indication: PROSTATE CANCER
     Dosage: 200MG BID PO
     Route: 048
     Dates: start: 20090817, end: 20100111
  2. PREDNISONE [Concomitant]
  3. PROCHLORPERAZINE MALEATE [Concomitant]
  4. PEGFILGRASTIM [Concomitant]
  5. MITOXANTRONE HYDROCHLORIDE [Concomitant]
  6. LUPRON [Concomitant]
  7. NIFEDICAL [Concomitant]
  8. TYLENOL-500 [Concomitant]
  9. ZOMETA [Concomitant]
  10. MEGACE [Concomitant]
  11. POTASSIUM CHLORIDE [Concomitant]

REACTIONS (2)
  - DYSPNOEA [None]
  - GASTROINTESTINAL HAEMORRHAGE [None]
